FAERS Safety Report 15632733 (Version 1)
Quarter: 2018Q4

REPORT INFORMATION
  Report Type: Spontaneous
  Country: US (occurrence: US)
  Receive Date: 20181119
  Receipt Date: 20181119
  Transmission Date: 20190205
  Serious: Yes (Hospitalization)
  Sender: FDA-Public Use
  Company Number: US-ANIPHARMA-2018-US-018285

PATIENT
  Age: 46 Year
  Sex: Female

DRUGS (1)
  1. FLUCONAZOLE (NON-SPECIFIC) [Suspect]
     Active Substance: FLUCONAZOLE
     Indication: CRYPTOCOCCOSIS

REACTIONS (2)
  - Troponin I increased [Recovered/Resolved]
  - Jarisch-Herxheimer reaction [Recovered/Resolved]
